FAERS Safety Report 7326117-X (Version None)
Quarter: 2011Q1

REPORT INFORMATION
  Report Type: 
  Country: None (occurrence: None)
  Receive Date: 20110302
  Receipt Date: 20110218
  Transmission Date: 20110831
  Serious: Yes (Other)
  Sender: FDA-Public Use
  Company Number: US-ROCHE-761420

PATIENT
  Sex: Female

DRUGS (1)
  1. BONIVA [Suspect]
     Route: 065

REACTIONS (3)
  - DYSPHAGIA [None]
  - MUSCLE SPASMS [None]
  - THROAT TIGHTNESS [None]
